FAERS Safety Report 7268170-8 (Version None)
Quarter: 2011Q1

REPORT INFORMATION
  Report Type: 
  Country: None (occurrence: None)
  Receive Date: 20110201
  Receipt Date: 20101208
  Transmission Date: 20110831
  Serious: Yes (Congenital Anomaly, Other)
  Sender: FDA-Public Use
  Company Number: PHHO2010ZM18538

PATIENT
  Sex: Female
  Weight: 2.87 kg

DRUGS (1)
  1. ARTEMETHER,BENFLUMETOL [Suspect]
     Indication: MALARIA
     Dosage: UNK
     Route: 064

REACTIONS (5)
  - LABIA ENLARGED [None]
  - STRIDOR [None]
  - DRUG EXPOSURE DURING PREGNANCY [None]
  - SWELLING FACE [None]
  - TALIPES [None]
